FAERS Safety Report 10562720 (Version 2)
Quarter: 2014Q4

REPORT INFORMATION
  Report Type: Spontaneous
  Country: US (occurrence: US)
  Receive Date: 20141104
  Receipt Date: 20141104
  Transmission Date: 20150529
  Serious: No
  Sender: FDA-Public Use
  Company Number: US-SHIRE-US201406207

PATIENT
  Age: 30 Year
  Sex: Female
  Weight: 58.96 kg

DRUGS (3)
  1. ADDERALL XR [Suspect]
     Active Substance: AMPHETAMINE ASPARTATE\AMPHETAMINE SULFATE\DEXTROAMPHETAMINE SACCHARATE\DEXTROAMPHETAMINE SULFATE
     Indication: ATTENTION DEFICIT/HYPERACTIVITY DISORDER
     Dosage: 15 MG, UNKNOWN
     Route: 048
     Dates: start: 201404, end: 201405
  2. ADDERALL XR [Suspect]
     Active Substance: AMPHETAMINE ASPARTATE\AMPHETAMINE SULFATE\DEXTROAMPHETAMINE SACCHARATE\DEXTROAMPHETAMINE SULFATE
     Dosage: 20 MG, 1X/DAY:QD
     Route: 048
     Dates: start: 201407
  3. ADDERALL XR [Suspect]
     Active Substance: AMPHETAMINE ASPARTATE\AMPHETAMINE SULFATE\DEXTROAMPHETAMINE SACCHARATE\DEXTROAMPHETAMINE SULFATE
     Dosage: 15 MG, UNKNOWN
     Route: 048
     Dates: start: 201406, end: 201407

REACTIONS (11)
  - Activities of daily living impaired [Unknown]
  - Feeling abnormal [Not Recovered/Not Resolved]
  - Insomnia [Not Recovered/Not Resolved]
  - Disturbance in social behaviour [Not Recovered/Not Resolved]
  - Drug effect decreased [Recovered/Resolved]
  - Product quality issue [Unknown]
  - Obsessive thoughts [Not Recovered/Not Resolved]
  - Apathy [Not Recovered/Not Resolved]
  - Emotional distress [Unknown]
  - Drug effect increased [Not Recovered/Not Resolved]
  - Fatigue [Not Recovered/Not Resolved]

NARRATIVE: CASE EVENT DATE: 2014
